FAERS Safety Report 9986334 (Version 1)
Quarter: 2014Q1

REPORT INFORMATION
  Report Type: Report from Study
  Country: US (occurrence: US)
  Receive Date: 20140307
  Receipt Date: 20140307
  Transmission Date: 20141002
  Serious: No
  Sender: FDA-Public Use
  Company Number: US-ABBVIE-13P-163-1161533-00

PATIENT
  Age: 56 Year
  Sex: Female

DRUGS (6)
  1. HUMIRA [Suspect]
     Indication: PSORIASIS
     Route: 058
     Dates: start: 20121023
  2. HUMIRA [Suspect]
     Indication: PSORIATIC ARTHROPATHY
  3. IBUPROFEN [Concomitant]
     Indication: PRODUCT USED FOR UNKNOWN INDICATION
  4. NAPROXEN [Concomitant]
     Indication: PRODUCT USED FOR UNKNOWN INDICATION
  5. CLOBETASOL [Concomitant]
     Indication: PRODUCT USED FOR UNKNOWN INDICATION
     Route: 061
  6. DOVONEX [Concomitant]
     Indication: PRODUCT USED FOR UNKNOWN INDICATION
     Route: 061

REACTIONS (1)
  - Hepatic enzyme increased [Not Recovered/Not Resolved]
